FAERS Safety Report 11627417 (Version 13)
Quarter: 2018Q4

REPORT INFORMATION
  Report Type: Spontaneous
  Country: FR (occurrence: FR)
  Receive Date: 20151013
  Receipt Date: 20181017
  Transmission Date: 20190204
  Serious: Yes (Hospitalization, Disabling, Other)
  Sender: FDA-Public Use
  Company Number: FR-ALLERGAN-1519167US

PATIENT
  Age: 58 Year
  Sex: Male
  Weight: 85 kg

DRUGS (9)
  1. CELLCEPT [Suspect]
     Active Substance: MYCOPHENOLATE MOFETIL\MYCOPHENOLATE MOFETIL HYDROCHLORIDE
     Indication: NEPHROPATHY
     Dosage: UNK
     Route: 048
     Dates: end: 201502
  2. LANTUS [Concomitant]
     Active Substance: INSULIN GLARGINE
     Indication: PRODUCT USED FOR UNKNOWN INDICATION
     Dosage: 30 UNITS, QHS
     Route: 065
  3. DIFFU K [Concomitant]
     Active Substance: POTASSIUM CHLORIDE
     Indication: PRODUCT USED FOR UNKNOWN INDICATION
     Dosage: UNK
     Route: 065
  4. EXFORGE [Concomitant]
     Active Substance: AMLODIPINE BESYLATE\VALSARTAN
     Indication: PRODUCT USED FOR UNKNOWN INDICATION
     Dosage: UNK
     Route: 065
  5. OZURDEX [Suspect]
     Active Substance: DEXAMETHASONE
     Dosage: 0.7 MG, SINGLE
     Route: 031
  6. METFORMINE [Concomitant]
     Active Substance: METFORMIN HYDROCHLORIDE
     Indication: PRODUCT USED FOR UNKNOWN INDICATION
     Dosage: UNK
     Route: 065
  7. OZURDEX [Suspect]
     Active Substance: DEXAMETHASONE
     Indication: HENOCH-SCHONLEIN PURPURA NEPHRITIS
     Dosage: 0.7 MG, SINGLE
     Route: 031
  8. OZURDEX [Suspect]
     Active Substance: DEXAMETHASONE
     Indication: DIABETIC RETINAL OEDEMA
     Dosage: 0.7 MG, SINGLE
     Route: 031
     Dates: start: 20150211, end: 20150211
  9. ESOMEPRAZOLE. [Concomitant]
     Active Substance: ESOMEPRAZOLE MAGNESIUM
     Indication: PRODUCT USED FOR UNKNOWN INDICATION
     Dosage: UNK
     Route: 065

REACTIONS (15)
  - Cellulitis [Recovered/Resolved]
  - Blindness unilateral [Not Recovered/Not Resolved]
  - Oedema [Recovered/Resolved]
  - Cellulitis streptococcal [Recovered/Resolved]
  - Eye pain [Recovered/Resolved]
  - Necrotising fasciitis streptococcal [Recovered/Resolved]
  - Acute kidney injury [Recovering/Resolving]
  - Sepsis [Recovering/Resolving]
  - Endophthalmitis [Recovered/Resolved]
  - Cardiac failure [Recovering/Resolving]
  - Vomiting [Recovered/Resolved]
  - Cellulitis orbital [Recovered/Resolved]
  - Bacterial sepsis [Recovered/Resolved]
  - Erythema of eyelid [Recovered/Resolved]
  - Off label use [Unknown]

NARRATIVE: CASE EVENT DATE: 20150213
